FAERS Safety Report 5048754-8 (Version None)
Quarter: 2006Q3

REPORT INFORMATION
  Report Type: 
  Country: None (occurrence: None)
  Receive Date: 20060705
  Receipt Date: 20060622
  Transmission Date: 20061208
  Serious: Yes (Other)
  Sender: FDA-Public Use
  Company Number: HQWYE347923JUN06

PATIENT
  Age: 65 Year
  Sex: Male

DRUGS (1)
  1. ANCARON (AMIODARONE, TABLET) [Suspect]
     Dosage: ORAL
     Route: 048
     Dates: start: 20040101

REACTIONS (1)
  - PLEURAL EFFUSION [None]
